FAERS Safety Report 10039686 (Version 1)
Quarter: 2014Q1

REPORT INFORMATION
  Report Type: Spontaneous
  Country: DE (occurrence: DE)
  Receive Date: 20140326
  Receipt Date: 20140326
  Transmission Date: 20141002
  Serious: Yes (Other)
  Sender: FDA-Public Use
  Company Number: DE-JNJFOC-20140314517

PATIENT
  Age: 84 Year
  Sex: Male
  Weight: 70 kg

DRUGS (7)
  1. XARELTO [Suspect]
     Indication: PRODUCT USED FOR UNKNOWN INDICATION
     Route: 048
  2. SIMVASTATIN [Concomitant]
     Route: 065
  3. SPIRONOLACTON [Concomitant]
     Route: 065
  4. TORASEMID [Concomitant]
     Route: 065
  5. METOHEXAL [Concomitant]
     Route: 065
  6. RAMIPRIL [Concomitant]
     Route: 065
  7. RIVASTIGMINE [Concomitant]
     Route: 065

REACTIONS (1)
  - Tongue carcinoma stage 0 [Unknown]
